FAERS Safety Report 11897866 (Version 1)
Quarter: 2016Q1

REPORT INFORMATION
  Report Type: Spontaneous
  Country: US (occurrence: None)
  Receive Date: 20160107
  Receipt Date: 20160107
  Transmission Date: 20160526
  Serious: No
  Sender: FDA-Public Use
  Company Number: None

PATIENT
  Age: 4 Year
  Sex: Male
  Weight: 20.41 kg

DRUGS (1)
  1. TRIAMCINOLONE .1% PERRIGO [Suspect]
     Active Substance: TRIAMCINOLONE
     Indication: ECZEMA
     Dosage: APPLY TO AFFECTED AREA; APPLIED TO A SURFACE USUALLY THE SKIN
     Route: 061

REACTIONS (3)
  - Urticaria [None]
  - Rebound effect [None]
  - Burning sensation [None]

NARRATIVE: CASE EVENT DATE: 20150901
